FAERS Safety Report 24545416 (Version 1)
Quarter: 2024Q4

REPORT INFORMATION
  Report Type: Spontaneous
  Country: US (occurrence: None)
  Receive Date: 20241023
  Receipt Date: 20241023
  Transmission Date: 20250115
  Serious: Yes (Disabling)
  Sender: Public
  Company Number: None

PATIENT
  Age: 65 Year
  Sex: Male
  Weight: 94.5 kg

DRUGS (2)
  1. CIPROFLOXACIN [Suspect]
     Active Substance: CIPROFLOXACIN
     Indication: Pseudomonas infection
  2. CIPROFLOXACIN [Suspect]
     Active Substance: CIPROFLOXACIN
     Indication: Post procedural infection

REACTIONS (4)
  - Neuropathy peripheral [None]
  - Gait disturbance [None]
  - Fatigue [None]
  - Depression [None]

NARRATIVE: CASE EVENT DATE: 20240607
